FAERS Safety Report 5087540-X (Version None)
Quarter: 2006Q3

REPORT INFORMATION
  Report Type: 
  Country: None (occurrence: None)
  Receive Date: 20060824
  Receipt Date: 20060817
  Transmission Date: 20061208
  Serious: Yes (Hospitalization)
  Sender: FDA-Public Use
  Company Number: CH-GLAXOSMITHKLINE-B0434799A

PATIENT
  Age: 26 Year
  Sex: Female
  Weight: 66 kg

DRUGS (10)
  1. SERETIDE DISKUS [Suspect]
     Dosage: 50UG TWICE PER DAY
     Route: 055
     Dates: start: 20060221
  2. VENTOLIN DISKUS [Suspect]
     Dosage: 200UG TWICE PER DAY
     Route: 055
     Dates: start: 20060220, end: 20060221
  3. RESYL PLUS [Suspect]
     Dosage: 30DROP TWICE PER DAY
     Route: 048
     Dates: start: 20060217, end: 20060218
  4. CODIPRONT [Suspect]
     Dosage: 30MG TWICE PER DAY
     Route: 048
     Dates: start: 20060217, end: 20060222
  5. DEXTROMETHORPHAN HYDROBROMIDE [Suspect]
     Dosage: 23MG TWICE PER DAY
     Route: 048
     Dates: start: 20060220, end: 20060221
  6. CLARITHROMYCIN [Concomitant]
     Dosage: 500MG TWICE PER DAY
     Route: 048
     Dates: start: 20060215, end: 20060221
  7. SOLMUCOL [Concomitant]
     Dosage: 600MG PER DAY
     Route: 048
     Dates: end: 20060221
  8. LOCABIOTAL [Concomitant]
     Dosage: .5MG TWICE PER DAY
     Route: 061
  9. PREDNISON [Concomitant]
     Dates: start: 20060217
  10. ACETAMINOPHEN [Concomitant]
     Dosage: 1G PER DAY
     Route: 048
     Dates: start: 20060217, end: 20060217

REACTIONS (5)
  - COORDINATION ABNORMAL [None]
  - FATIGUE [None]
  - SLEEP DISORDER [None]
  - SPEECH DISORDER [None]
  - TREMOR [None]
